FAERS Safety Report 5512206-9 (Version None)
Quarter: 2007Q4

REPORT INFORMATION
  Report Type: 
  Country: None (occurrence: None)
  Receive Date: 20071112
  Receipt Date: 20071030
  Transmission Date: 20080405
  Serious: Yes (Other)
  Sender: FDA-Public Use
  Company Number: PHBS2007CN18177

PATIENT
  Sex: Male

DRUGS (2)
  1. SEBIVO [Suspect]
     Route: 048
     Dates: start: 20070822, end: 20071025
  2. IFN [Concomitant]

REACTIONS (5)
  - BLOOD CREATINE PHOSPHOKINASE INCREASED [None]
  - BLOOD CREATINE PHOSPHOKINASE MB INCREASED [None]
  - MYALGIA [None]
  - NAIL DISORDER [None]
  - NEUROPATHY PERIPHERAL [None]
